FAERS Safety Report 5471886-7 (Version None)
Quarter: 2007Q3

REPORT INFORMATION
  Report Type: 
  Country: None (occurrence: None)
  Receive Date: 20070928
  Receipt Date: 20070724
  Transmission Date: 20080115
  Serious: No
  Sender: FDA-Public Use
  Company Number: US-BRISTOL-MYERS SQUIBB COMPANY-13856000

PATIENT
  Age: 74 Year
  Sex: Male
  Weight: 89 kg

DRUGS (9)
  1. DEFINITY [Suspect]
     Dates: start: 20070724, end: 20070724
  2. VICODIN [Concomitant]
  3. LASIX [Concomitant]
  4. FLOMAX [Concomitant]
  5. NIACIN [Concomitant]
  6. LISINOPRIL [Concomitant]
  7. LIPITOR [Concomitant]
  8. SULINDAC [Concomitant]
  9. ASPIRIN [Concomitant]

REACTIONS (1)
  - MUSCLE SPASMS [None]
